FAERS Safety Report 22346119 (Version 1)
Quarter: 2023Q2

REPORT INFORMATION
  Report Type: Report from Study
  Country: US (occurrence: US)
  Receive Date: 20230519
  Receipt Date: 20230519
  Transmission Date: 20230722
  Serious: No
  Sender: FDA-Public Use
  Company Number: US-002147023-NVSC2023US112578

PATIENT
  Sex: Female
  Weight: 92.517 kg

DRUGS (34)
  1. METHOTREXATE [Suspect]
     Active Substance: METHOTREXATE
     Indication: Psoriasis
     Dosage: UNK
     Route: 065
  2. METHOTREXATE [Suspect]
     Active Substance: METHOTREXATE
     Indication: Psoriatic arthropathy
  3. COSENTYX [Suspect]
     Active Substance: SECUKINUMAB
     Indication: Psoriasis
     Dosage: UNK
     Route: 065
  4. COSENTYX [Suspect]
     Active Substance: SECUKINUMAB
     Indication: Psoriatic arthropathy
  5. CLOBETASOL [Suspect]
     Active Substance: CLOBETASOL
     Indication: Psoriasis
     Dosage: UNK
     Route: 065
  6. CLOBETASOL [Suspect]
     Active Substance: CLOBETASOL
     Indication: Psoriatic arthropathy
  7. ONDANSETRON [Suspect]
     Active Substance: ONDANSETRON
     Indication: Psoriasis
     Dosage: UNK
     Route: 065
  8. ONDANSETRON [Suspect]
     Active Substance: ONDANSETRON
     Indication: Psoriatic arthropathy
  9. CYCLOSPORINE [Suspect]
     Active Substance: CYCLOSPORINE
     Indication: Psoriasis
     Dosage: UNK
     Route: 065
  10. CYCLOSPORINE [Suspect]
     Active Substance: CYCLOSPORINE
     Indication: Psoriatic arthropathy
  11. ROPINIROLE [Suspect]
     Active Substance: ROPINIROLE
     Indication: Psoriasis
     Dosage: UNK
     Route: 065
  12. ROPINIROLE [Suspect]
     Active Substance: ROPINIROLE
     Indication: Psoriatic arthropathy
  13. TOFACITINIB [Suspect]
     Active Substance: TOFACITINIB
     Indication: Psoriasis
     Dosage: UNK
     Route: 065
  14. TOFACITINIB [Suspect]
     Active Substance: TOFACITINIB
     Indication: Psoriatic arthropathy
  15. APREMILAST [Suspect]
     Active Substance: APREMILAST
     Indication: Psoriasis
     Dosage: UNK
     Route: 065
  16. APREMILAST [Suspect]
     Active Substance: APREMILAST
     Indication: Psoriatic arthropathy
  17. PREGABALIN [Suspect]
     Active Substance: PREGABALIN
     Indication: Psoriasis
     Dosage: UNK
     Route: 065
  18. PREGABALIN [Suspect]
     Active Substance: PREGABALIN
     Indication: Psoriatic arthropathy
  19. INFLIXIMAB [Suspect]
     Active Substance: INFLIXIMAB
     Indication: Psoriasis
     Dosage: UNK
     Route: 065
  20. INFLIXIMAB [Suspect]
     Active Substance: INFLIXIMAB
     Indication: Psoriatic arthropathy
  21. CERTOLIZUMAB [Suspect]
     Active Substance: CERTOLIZUMAB
     Indication: Psoriasis
     Dosage: UNK
     Route: 065
  22. CERTOLIZUMAB [Suspect]
     Active Substance: CERTOLIZUMAB
     Indication: Psoriatic arthropathy
  23. CALCIPOTRIENE [Suspect]
     Active Substance: CALCIPOTRIENE
     Indication: Psoriasis
     Dosage: UNK
     Route: 065
  24. CALCIPOTRIENE [Suspect]
     Active Substance: CALCIPOTRIENE
     Indication: Psoriatic arthropathy
  25. TIZANIDINE [Suspect]
     Active Substance: TIZANIDINE
     Indication: Psoriasis
     Dosage: UNK
     Route: 065
  26. TIZANIDINE [Suspect]
     Active Substance: TIZANIDINE
     Indication: Psoriatic arthropathy
  27. CHOLECALCIFEROL [Suspect]
     Active Substance: CHOLECALCIFEROL
     Indication: Psoriasis
     Dosage: UNK
     Route: 065
  28. CHOLECALCIFEROL [Suspect]
     Active Substance: CHOLECALCIFEROL
     Indication: Psoriatic arthropathy
  29. FLUOXETINE [Suspect]
     Active Substance: FLUOXETINE HYDROCHLORIDE
     Indication: Psoriasis
     Dosage: UNK
     Route: 065
  30. FLUOXETINE [Suspect]
     Active Substance: FLUOXETINE HYDROCHLORIDE
     Indication: Psoriatic arthropathy
  31. SUMATRIPTAN [Suspect]
     Active Substance: SUMATRIPTAN
     Indication: Psoriasis
     Dosage: UNK
     Route: 065
  32. SUMATRIPTAN [Suspect]
     Active Substance: SUMATRIPTAN
     Indication: Psoriatic arthropathy
  33. PREDNISONE [Suspect]
     Active Substance: PREDNISONE
     Indication: Psoriasis
     Dosage: UNK
     Route: 065
  34. PREDNISONE [Suspect]
     Active Substance: PREDNISONE
     Indication: Psoriatic arthropathy

REACTIONS (17)
  - Drug ineffective [Unknown]
  - Ocular hyperaemia [Unknown]
  - Vision blurred [Unknown]
  - Snoring [Unknown]
  - Dysphonia [Unknown]
  - Diarrhoea [Unknown]
  - Nausea [Unknown]
  - Micturition urgency [Unknown]
  - Muscular weakness [Unknown]
  - Anxiety [Unknown]
  - Depressed mood [Unknown]
  - Arthralgia [Unknown]
  - Myalgia [Unknown]
  - Joint stiffness [Unknown]
  - Peripheral swelling [Unknown]
  - Muscle spasms [Unknown]
  - Back pain [Unknown]
